FAERS Safety Report 6569623-8 (Version None)
Quarter: 2010Q1

REPORT INFORMATION
  Report Type: 
  Country: None (occurrence: None)
  Receive Date: 20100204
  Receipt Date: 20100127
  Transmission Date: 20100710
  Serious: Yes (Other)
  Sender: FDA-Public Use
  Company Number: US-ALEXION-A201000048

PATIENT
  Sex: Male

DRUGS (12)
  1. SOLIRIS [Suspect]
     Indication: PAROXYSMAL NOCTURNAL HAEMOGLOBINURIA
     Dosage: 600 MG, QW X4
     Route: 042
     Dates: start: 20090625
  2. SOLIRIS [Suspect]
     Dosage: 900 MG, UNK
     Route: 042
     Dates: start: 20090724
  3. POTASSIUM CHLORIDE [Concomitant]
     Dosage: UNK
     Route: 048
  4. DILTIAZEM HCL [Concomitant]
     Dosage: UNK
     Route: 048
  5. PREDNISONE [Concomitant]
     Dosage: UNK
     Route: 048
  6. FOLIC ACID [Concomitant]
     Dosage: UNK
     Route: 048
  7. ZOLPIDEM [Concomitant]
     Dosage: UNK
     Route: 048
  8. OMEPRAZOLE [Concomitant]
     Dosage: UNK
     Route: 048
  9. SIMVASTATIN [Concomitant]
     Dosage: UNK
     Route: 048
  10. VITAMIN C                          /00008001/ [Concomitant]
     Dosage: UNK
     Route: 048
  11. ASPIRIN [Concomitant]
     Dosage: UNK
     Route: 048
  12. CENTRUM                            /00554501/ [Concomitant]
     Dosage: UNK
     Route: 048

REACTIONS (3)
  - ATELECTASIS [None]
  - PLEURAL EFFUSION [None]
  - PULMONARY MASS [None]
